FAERS Safety Report 18286304 (Version 1)
Quarter: 2020Q3

REPORT INFORMATION
  Report Type: Spontaneous
  Country: ES (occurrence: ES)
  Receive Date: 20200920
  Receipt Date: 20200920
  Transmission Date: 20201103
  Serious: Yes (Death, Hospitalization, Other)
  Sender: FDA-Public Use
  Company Number: ES-LUPIN PHARMACEUTICALS INC.-2020-06094

PATIENT
  Age: 6 Decade

DRUGS (2)
  1. METHYLPREDNISOLONE. [Suspect]
     Active Substance: METHYLPREDNISOLONE
     Indication: COVID-19
     Dosage: UNK (RECEIVED MORE THAN 1000MG)
     Route: 065
  2. TOCILIZUMAB. [Suspect]
     Active Substance: TOCILIZUMAB
     Indication: COVID-19
     Dosage: 600 MILLIGRAM (RECEIVED 2 DOSES)
     Route: 042

REACTIONS (10)
  - Staphylococcal infection [Fatal]
  - Endocarditis [Fatal]
  - Off label use [Fatal]
  - Psoas abscess [Unknown]
  - Sepsis [Fatal]
  - Meningitis [Unknown]
  - Mitral valve incompetence [Unknown]
  - Intervertebral discitis [Unknown]
  - Arthritis [Unknown]
  - Deep vein thrombosis [Unknown]
